FAERS Safety Report 7790917-2 (Version None)
Quarter: 2011Q3

REPORT INFORMATION
  Report Type: 
  Country: None (occurrence: None)
  Receive Date: 20110930
  Receipt Date: 20110930
  Transmission Date: 20111222
  Serious: Yes (Life-Threatening, Hospitalization)
  Sender: FDA-Public Use
  Company Number: None

PATIENT
  Age: 71 Year
  Sex: Male
  Weight: 104.32 kg

DRUGS (7)
  1. METFORMIN HCL [Concomitant]
  2. LIPITOR [Concomitant]
  3. PRADAXA [Suspect]
     Indication: ATRIAL FIBRILLATION
     Dosage: 150MG
     Route: 051
     Dates: start: 20110501, end: 20110903
  4. LISINOPRIL [Concomitant]
  5. ASPIRIN [Concomitant]
  6. MULTAQ [Concomitant]
  7. TOPROL-XL [Concomitant]

REACTIONS (10)
  - HAND FRACTURE [None]
  - HAEMODYNAMIC INSTABILITY [None]
  - HAEMORRHAGE [None]
  - HAEMATOCRIT DECREASED [None]
  - LACERATION [None]
  - INJURY [None]
  - ARRHYTHMIA [None]
  - BLOOD PRESSURE DECREASED [None]
  - MULTIPLE INJURIES [None]
  - ATRIAL FIBRILLATION [None]
